FAERS Safety Report 20829821 (Version 1)
Quarter: 2022Q2

REPORT INFORMATION
  Report Type: Report from Study
  Country: US (occurrence: None)
  Receive Date: 20220513
  Receipt Date: 20220513
  Transmission Date: 20220721
  Serious: Yes (Death)
  Sender: FDA-Public Use
  Company Number: US-ROCHE-1998526

PATIENT
  Age: 73 Year
  Sex: Female
  Weight: 60 kg

DRUGS (3)
  1. BEVACIZUMAB [Suspect]
     Active Substance: BEVACIZUMAB
     Indication: Ovarian epithelial cancer
     Dosage: 30-90 MIN ON DAY 1?DATE OF LAST ADMINISTERED DOSE: 09/JAN/2017 (918 MG)
     Route: 042
     Dates: start: 20140718
  2. PACLITAXEL [Suspect]
     Active Substance: PACLITAXEL
     Indication: Ovarian epithelial cancer
     Dosage: OVER 3 HRS ON DAY 1?DATE OF LAST ADMINISTERED DOSE: 12/DEC/2014
     Route: 042
     Dates: start: 20140718
  3. CARBOPLATIN [Suspect]
     Active Substance: CARBOPLATIN
     Indication: Ovarian epithelial cancer
     Dosage: 5 AUC OVER 30 MIN ON DAY 1?DATE OF LAST ADMINISTERED DOSE: 12/DEC/2014
     Route: 042
     Dates: start: 20140718

REACTIONS (1)
  - Hyponatraemia [Fatal]

NARRATIVE: CASE EVENT DATE: 20170204
